FAERS Safety Report 6111412-2 (Version None)
Quarter: 2009Q1

REPORT INFORMATION
  Report Type: 
  Country: None (occurrence: None)
  Receive Date: 20090309
  Receipt Date: 20090302
  Transmission Date: 20090719
  Serious: Yes (Hospitalization, Other)
  Sender: FDA-Public Use
  Company Number: A-US2009-24127

PATIENT
  Age: 51 Year
  Sex: Male

DRUGS (2)
  1. VENTAVIS [Suspect]
     Indication: PULMONARY ARTERIAL HYPERTENSION
     Dosage: 20 UG, 9 X DAY, RESPIRATORY
     Route: 055
     Dates: start: 20070101, end: 20090101
  2. TRACLEER [Concomitant]

REACTIONS (2)
  - MYELITIS TRANSVERSE [None]
  - OEDEMA PERIPHERAL [None]
